FAERS Safety Report 4868034-0 (Version None)
Quarter: 2005Q4

REPORT INFORMATION
  Report Type: 
  Country: None (occurrence: None)
  Receive Date: 20051222
  Receipt Date: 20051222
  Transmission Date: 20060501
  Serious: Yes (Other)
  Sender: FDA-Public Use
  Company Number: None

PATIENT
  Sex: Male
  Weight: 91.1 kg

DRUGS (3)
  1. INTERFERON ALPHA 2 B [Suspect]
     Indication: MALIGNANT MELANOMA
     Dosage: SEE IMAGE
     Route: 042
     Dates: start: 20050718, end: 20050720
  2. INTERFERON ALPHA 2 B [Suspect]
     Indication: MALIGNANT MELANOMA
     Dosage: SEE IMAGE
     Route: 042
     Dates: start: 20050718
  3. AVAPRO [Concomitant]

REACTIONS (8)
  - BACK PAIN [None]
  - DIZZINESS [None]
  - FLANK PAIN [None]
  - HYPOTENSION [None]
  - INFUSION SITE REACTION [None]
  - NECK PAIN [None]
  - PAIN [None]
  - PALLOR [None]
